FAERS Safety Report 9648812 (Version 1)
Quarter: 2013Q4

REPORT INFORMATION
  Report Type: Report from Study
  Country: ES (occurrence: ES)
  Receive Date: 20131028
  Receipt Date: 20131028
  Transmission Date: 20140711
  Serious: Yes (Hospitalization)
  Sender: FDA-Public Use
  Company Number: ES-GLAXOSMITHKLINE-Z0020897A

PATIENT
  Age: 57 Year
  Sex: Female
  Weight: 57.2 kg

DRUGS (2)
  1. OFATUMUMAB [Suspect]
     Indication: CHRONIC LYMPHOCYTIC LEUKAEMIA
     Route: 042
     Dates: start: 20110826, end: 20111219
  2. LEUKERAN [Suspect]
     Indication: CHRONIC LYMPHOCYTIC LEUKAEMIA
     Dosage: 4MGM2 FIVE TIMES PER WEEK
     Route: 048
     Dates: start: 20130415, end: 201305

REACTIONS (1)
  - Febrile neutropenia [Recovered/Resolved]
